FAERS Safety Report 6292429-4 (Version None)
Quarter: 2009Q3

REPORT INFORMATION
  Report Type: 
  Country: None (occurrence: None)
  Receive Date: 20090731
  Receipt Date: 20090722
  Transmission Date: 20100115
  Serious: Yes (Other)
  Sender: FDA-Public Use
  Company Number: PHHY2009BR30760

PATIENT
  Sex: Male
  Weight: 70 kg

DRUGS (3)
  1. ZOMETA [Suspect]
     Indication: PROSTATE CANCER
     Dosage: UNK
  2. MABTHERA [Suspect]
     Dosage: UNK
  3. METHOTREXATE [Suspect]

REACTIONS (2)
  - IMMUNODEFICIENCY [None]
  - URINARY TRACT INFECTION [None]
